FAERS Safety Report 13668276 (Version 4)
Quarter: 2017Q4

REPORT INFORMATION
  Report Type: Spontaneous
  Country: US (occurrence: US)
  Receive Date: 20170620
  Receipt Date: 20171121
  Transmission Date: 20180320
  Serious: No
  Sender: FDA-Public Use
  Company Number: US-PFIZER INC-2017265430

PATIENT
  Age: 67 Year
  Sex: Female
  Weight: 62.14 kg

DRUGS (10)
  1. LETROZOLE. [Concomitant]
     Active Substance: LETROZOLE
     Dosage: UNK
     Dates: start: 2017, end: 2017
  2. FASLODEX [Concomitant]
     Active Substance: FULVESTRANT
     Dosage: 500 ML, UNK
     Dates: start: 2017
  3. IBRANCE [Suspect]
     Active Substance: PALBOCICLIB
     Dosage: 75 MG, CYCLIC (75MG CAPSULE ONCE A DAY FOR 21 DAYS THEN OFF FOR 7 DAYS)
     Route: 048
     Dates: start: 2017
  4. LOVASTATIN. [Concomitant]
     Active Substance: LOVASTATIN
     Indication: BLOOD CHOLESTEROL ABNORMAL
     Dosage: 20 MG, 1X/DAY
     Route: 048
  5. IBRANCE [Suspect]
     Active Substance: PALBOCICLIB
     Indication: BREAST CANCER METASTATIC
     Dosage: 125 MG, CYCLIC  (125MG CAPSULE BY MOUTH ONCE A DAY IN THE MORNING)
     Route: 048
     Dates: start: 20170602, end: 2017
  6. CALCIUM WITH VITAMIN D [Concomitant]
     Active Substance: CALCIUM\VITAMIN D
     Indication: SUPPLEMENTATION THERAPY
     Dosage: 600 MG, 2X/DAY (600 MG TABLET ONE IN MORNING AND ONE AT NIGHT BY MOUTH)
     Route: 048
  7. IBRANCE [Suspect]
     Active Substance: PALBOCICLIB
     Dosage: 100 MG, CYCLIC (ONCE A DAY FOR 21 DAYS THEN OFF FOR 7 DAYS )
     Route: 048
     Dates: start: 20170714, end: 2017
  8. LEVOTHYROXINE. [Concomitant]
     Active Substance: LEVOTHYROXINE
     Indication: THYROID DISORDER
     Dosage: 60 UG, UNK (60MCG TABLET BY MOUTH FOR 6 DAYS THEN 112MCG TABLET BY MOUTH ON THE 7TH DAY)
     Route: 048
  9. LEVOTHYROXINE. [Concomitant]
     Active Substance: LEVOTHYROXINE
     Dosage: 112 UG, UNK (60MCG TABLET BY MOUTH FOR 6 DAYS THEN 112MCG TABLET BY MOUTH ON THE 7TH DAY)
     Route: 048
  10. CULTURELLE [Concomitant]
     Active Substance: LACTOBACILLUS RHAMNOSUS
     Indication: FLATULENCE
     Dosage: 1 DF, DAILY
     Route: 048

REACTIONS (7)
  - White blood cell count decreased [Recovering/Resolving]
  - Drug dose omission [Unknown]
  - Fatigue [Unknown]
  - Arthralgia [Unknown]
  - Hot flush [Unknown]
  - Arthritis [Unknown]
  - Anxiety [Unknown]

NARRATIVE: CASE EVENT DATE: 2017
